FAERS Safety Report 20810516 (Version 1)
Quarter: 2022Q2

REPORT INFORMATION
  Report Type: Spontaneous
  Country: US (occurrence: US)
  Receive Date: 20220510
  Receipt Date: 20220510
  Transmission Date: 20220721
  Serious: No
  Sender: FDA-Public Use
  Company Number: US-GLAUKOS-AVE-2021-0215-AE

PATIENT

DRUGS (2)
  1. RIBOFLAVIN 5^-PHOSPHATE SODIUM [Suspect]
     Active Substance: RIBOFLAVIN 5^-PHOSPHATE SODIUM
     Indication: Keratoconus
     Route: 047
     Dates: start: 2020, end: 2020
  2. DEVICE [Suspect]
     Active Substance: DEVICE
     Indication: Product used for unknown indication
     Route: 047

REACTIONS (5)
  - Corneal abrasion [Unknown]
  - Emotional distress [Unknown]
  - Eye complication associated with device [Unknown]
  - Visual impairment [Recovered/Resolved]
  - Eye pain [Unknown]
